FAERS Safety Report 9509571 (Version 2)
Quarter: 2013Q3

REPORT INFORMATION
  Report Type: Spontaneous
  Country: US (occurrence: US)
  Receive Date: 20130909
  Receipt Date: 20130909
  Transmission Date: 20140515
  Serious: Yes (Other)
  Sender: FDA-Public Use
  Company Number: US-BRISTOL-MYERS SQUIBB COMPANY-17223140

PATIENT
  Age: 43 Year
  Sex: Female
  Weight: 43.99 kg

DRUGS (8)
  1. ABILIFY TABS 10 MG [Suspect]
     Indication: BIPOLAR DISORDER
     Dosage: DOSE INCREASED TO 10MG THEN 20 AND 30MG?10MG,LOT## 8M25615A,DEC11
  2. SEROQUEL [Concomitant]
  3. TRILEPTAL [Concomitant]
  4. TRAZODONE HCL [Concomitant]
     Indication: INSOMNIA
  5. VALIUM [Concomitant]
     Dosage: VALIUM 40MG
  6. LAMICTAL [Concomitant]
     Indication: ANTIDEPRESSANT THERAPY
  7. TRILEPTAL [Concomitant]
  8. KLONOPIN [Concomitant]
     Dosage: DOSE DECREASED TO 0.25MG

REACTIONS (14)
  - Mania [Unknown]
  - Pregnancy [Recovered/Resolved]
  - Live birth [Unknown]
  - Reading disorder [Unknown]
  - Dysarthria [Unknown]
  - Dysgraphia [Unknown]
  - Dry mouth [Unknown]
  - Confusional state [Unknown]
  - Anxiety [Unknown]
  - Depression [Unknown]
  - Weight increased [Unknown]
  - Weight decreased [Unknown]
  - Irritable bowel syndrome [Unknown]
  - Drug ineffective [Unknown]
